FAERS Safety Report 9840544 (Version 3)
Quarter: 2014Q1

REPORT INFORMATION
  Report Type: Spontaneous
  Country: US (occurrence: US)
  Receive Date: 20140124
  Receipt Date: 20140318
  Transmission Date: 20141002
  Serious: No
  Sender: FDA-Public Use
  Company Number: US-PFIZER INC-2014019635

PATIENT
  Age: 47 Year
  Sex: Female

DRUGS (2)
  1. DEPO-PROVERA [Suspect]
     Dosage: UNK
  2. WELLBUTRIN [Suspect]
     Dosage: 150 MG, 2X/DAY

REACTIONS (2)
  - Drug hypersensitivity [Unknown]
  - Weight increased [Unknown]
